FAERS Safety Report 5310298-3 (Version None)
Quarter: 2007Q2

REPORT INFORMATION
  Report Type: 
  Country: None (occurrence: None)
  Receive Date: 20070423
  Receipt Date: 20070405
  Transmission Date: 20071010
  Serious: Yes (Disabling, Other)
  Sender: FDA-Public Use
  Company Number: 2007RR-06786

PATIENT
  Age: 77 Year
  Sex: Male
  Weight: 90.7 kg

DRUGS (10)
  1. OFLOXACIN [Suspect]
     Dosage: 400 MG, BID, ORAL
     Route: 048
     Dates: start: 20070214, end: 20070221
  2. ASPIRIN [Concomitant]
  3. ATORVASTATIN CALCIUM [Concomitant]
  4. BENDROFLUMETHIAZIDE (BENDROFLUMETHIAZIDE) [Concomitant]
  5. BISOPROLOL FUMARATE [Concomitant]
  6. CARDURA [Concomitant]
  7. EZETIMIBE [Concomitant]
  8. HUMULIN M3 [Concomitant]
  9. LISINOPRIL (LISNOPRIL) [Concomitant]
  10. NAPROXEN [Concomitant]

REACTIONS (1)
  - MUSCLE SPASMS [None]
